FAERS Safety Report 17300867 (Version 3)
Quarter: 2020Q1

REPORT INFORMATION
  Report Type: Report from Study
  Country: US (occurrence: US)
  Receive Date: 20200122
  Receipt Date: 20200205
  Transmission Date: 20200409
  Serious: Yes (Other)
  Sender: FDA-Public Use
  Company Number: US-PFIZER INC-2020028587

PATIENT
  Age: 6 Year
  Sex: Male
  Weight: 22.6 kg

DRUGS (20)
  1. DEXRAZOXANE. [Concomitant]
     Active Substance: DEXRAZOXANE
     Dosage: 212 MILLIGRAM
     Route: 065
     Dates: start: 20191226, end: 20191226
  2. PROPOFOL. [Concomitant]
     Active Substance: PROPOFOL
     Dosage: 165.02 MILLIGRAM
     Route: 065
     Dates: start: 20191226, end: 20191226
  3. DAUNORUBICIN [Concomitant]
     Active Substance: DAUNORUBICIN
     Dosage: 21 MILLIGRAM
     Route: 065
     Dates: start: 20200102, end: 20200102
  4. VINCRISTINE SULFATE. [Suspect]
     Active Substance: VINCRISTINE SULFATE
     Dosage: 1.3 MILLIGRAM
     Route: 042
     Dates: start: 20200102, end: 20200102
  5. ONDANSETRON [Concomitant]
     Active Substance: ONDANSETRON
     Dosage: 12 MILLIGRAM
     Route: 065
     Dates: start: 20191226
  6. LACTATED RINGERS SOLUTION [Concomitant]
     Active Substance: CALCIUM CHLORIDE\POTASSIUM CHLORIDE\SODIUM CHLORIDE\SODIUM LACTATE
     Dosage: 250 DF
     Route: 065
     Dates: start: 20191226, end: 20191226
  7. METHOTREXATE. [Concomitant]
     Active Substance: METHOTREXATE
     Dosage: 12 MILLIGRAM
     Route: 065
     Dates: start: 20191226, end: 20191226
  8. VINCRISTINE SULFATE. [Suspect]
     Active Substance: VINCRISTINE SULFATE
     Dosage: 1.3 MILLIGRAM
     Route: 042
     Dates: start: 20200109, end: 20200109
  9. FAMOTIDINE. [Concomitant]
     Active Substance: FAMOTIDINE
     Dosage: 22 MILLIGRAM
     Route: 065
     Dates: start: 20191219
  10. DAUNORUBICIN [Concomitant]
     Active Substance: DAUNORUBICIN
     Dosage: 21 MILLIGRAM
     Route: 065
     Dates: start: 20191226, end: 20191226
  11. DEXRAZOXANE. [Concomitant]
     Active Substance: DEXRAZOXANE
     Dosage: 212 MILLIGRAM
     Route: 065
     Dates: start: 20200102, end: 20200102
  12. PARACETAMOL [Concomitant]
     Active Substance: ACETAMINOPHEN
     Dosage: 1950 MILLIGRAM
     Route: 065
     Dates: start: 20191220
  13. MACROGOL [Concomitant]
     Active Substance: POLYETHYLENE GLYCOLS
     Dosage: 17 GRAM
     Route: 065
     Dates: start: 20191220
  14. BACTRIM [Concomitant]
     Active Substance: SULFAMETHOXAZOLE\TRIMETHOPRIM
     Dosage: 120 MILLIGRAM
     Route: 065
     Dates: start: 20191221
  15. ONDANSETRON [Concomitant]
     Active Substance: ONDANSETRON
     Dosage: 16 MILLIGRAM
     Route: 048
     Dates: start: 20191220, end: 20191226
  16. HEPARIN [Concomitant]
     Active Substance: HEPARIN SODIUM
     Dosage: 30 INTERNATIONAL UNIT
     Route: 065
     Dates: start: 20191222
  17. APIXABAN [Suspect]
     Active Substance: APIXABAN
     Indication: EMBOLISM VENOUS
     Dosage: 3 MILLIGRAM, TOTAL DAILY DOSE
     Route: 048
     Dates: start: 20191221, end: 20200109
  18. VINCRISTINE SULFATE. [Suspect]
     Active Substance: VINCRISTINE SULFATE
     Indication: ACUTE LYMPHOCYTIC LEUKAEMIA
     Dosage: 1.3 MILLIGRAM
     Route: 042
     Dates: start: 20191226, end: 20191226
  19. DEXAMETHASONE. [Concomitant]
     Active Substance: DEXAMETHASONE
     Dosage: 8.5 MILLIGRAM
     Route: 065
     Dates: start: 20191219
  20. LIDOCAINE. [Concomitant]
     Active Substance: LIDOCAINE
     Dosage: 1 DOSAGE FORM
     Route: 061
     Dates: start: 20191222

REACTIONS (1)
  - Hyperbilirubinaemia [Recovered/Resolved]

NARRATIVE: CASE EVENT DATE: 20200109
